FAERS Safety Report 11122498 (Version 3)
Quarter: 2015Q3

REPORT INFORMATION
  Report Type: Spontaneous
  Country: GB (occurrence: GB)
  Receive Date: 20150519
  Receipt Date: 20150814
  Transmission Date: 20151125
  Serious: Yes (Hospitalization)
  Sender: FDA-Public Use
  Company Number: GB-MERCK-1505GBR002288

PATIENT
  Age: 84 Year
  Sex: Male

DRUGS (7)
  1. ASPIRIN. [Concomitant]
     Active Substance: ASPIRIN
     Dosage: UNK
  2. DOCUSATE SODIUM. [Concomitant]
     Active Substance: DOCUSATE SODIUM
     Dosage: UNK
     Route: 048
  3. DAPTOMYCIN. [Suspect]
     Active Substance: DAPTOMYCIN
     Indication: STAPHYLOCOCCAL BACTERAEMIA
     Dosage: 700 MG, QD
     Route: 042
     Dates: start: 20141025, end: 20141203
  4. FELODIPINE. [Concomitant]
     Active Substance: FELODIPINE
     Dosage: UNK
  5. OMEPRAZOLE. [Concomitant]
     Active Substance: OMEPRAZOLE
     Dosage: UNK
  6. BETAHISTINE [Concomitant]
     Active Substance: BETAHISTINE
     Dosage: UNK
  7. DAPTOMYCIN. [Suspect]
     Active Substance: DAPTOMYCIN
     Indication: ARTHRITIS BACTERIAL

REACTIONS (9)
  - White blood cell count increased [Unknown]
  - C-reactive protein increased [Unknown]
  - Off label use [Recovered/Resolved]
  - Pyrexia [Unknown]
  - Eosinophilic pneumonia [Unknown]
  - Pulmonary eosinophilia [Recovered/Resolved]
  - Liver function test abnormal [Unknown]
  - Dyspnoea [Unknown]
  - Eosinophil count increased [Unknown]

NARRATIVE: CASE EVENT DATE: 20141025
